FAERS Safety Report 9213684 (Version 1)
Quarter: 2013Q2

REPORT INFORMATION
  Report Type: Spontaneous
  Country: US (occurrence: US)
  Receive Date: 20130405
  Receipt Date: 20130405
  Transmission Date: 20140414
  Serious: Yes (Death, Hospitalization)
  Sender: FDA-Public Use
  Company Number: US-ASTELLAS-2013US003589

PATIENT
  Age: 74 Year
  Sex: Female

DRUGS (1)
  1. TARCEVA [Suspect]
     Indication: LUNG CARCINOMA CELL TYPE UNSPECIFIED STAGE 0
     Dosage: 100 MG, UID/QD
     Route: 048
     Dates: start: 20070524, end: 20070815

REACTIONS (4)
  - Incorrect dose administered [Unknown]
  - Pleural effusion [Unknown]
  - Respiratory failure [Fatal]
  - Non-small cell lung cancer recurrent [Fatal]
